FAERS Safety Report 19097367 (Version 1)
Quarter: 2021Q2

REPORT INFORMATION
  Report Type: Spontaneous
  Country: JP (occurrence: JP)
  Receive Date: 20210406
  Receipt Date: 20210406
  Transmission Date: 20210717
  Serious: Yes (Life-Threatening, Hospitalization)
  Sender: FDA-Public Use
  Company Number: JP-TEVA-2021-JP-1898136

PATIENT
  Age: 44 Year
  Sex: Female

DRUGS (8)
  1. CHLORPHENAMINE [Suspect]
     Active Substance: CHLORPHENIRAMINE MALEATE
     Indication: ANAPHYLACTIC SHOCK
     Route: 042
  2. ETILEFRINE [Suspect]
     Active Substance: ETILEFRINE
     Indication: SYMPTOMATIC TREATMENT
     Route: 042
  3. METOCLOPRAMIDE. [Suspect]
     Active Substance: METOCLOPRAMIDE
     Indication: NAUSEA
     Route: 042
  4. HYDROCORTISONE. [Suspect]
     Active Substance: HYDROCORTISONE
     Indication: DYSPNOEA
     Dosage: TWO DOSES
     Route: 042
  5. IOPAMIDOL [Suspect]
     Active Substance: IOPAMIDOL
     Indication: SCAN WITH CONTRAST
     Route: 065
  6. FAMOTIDINE. [Suspect]
     Active Substance: FAMOTIDINE
     Indication: ANAPHYLACTIC SHOCK
     Route: 042
  7. EPINEPHRINE. [Suspect]
     Active Substance: EPINEPHRINE
     Indication: ANAPHYLACTIC SHOCK
     Dosage: TWICE
     Route: 030
  8. HYDROXYZINE [Suspect]
     Active Substance: HYDROXYZINE HYDROCHLORIDE
     Indication: ANAPHYLACTIC SHOCK
     Route: 042

REACTIONS (4)
  - Drug ineffective [Unknown]
  - Non-cardiogenic pulmonary oedema [Recovered/Resolved]
  - Anaphylactic shock [Recovered/Resolved]
  - Contrast media toxicity [Recovered/Resolved]
